FAERS Safety Report 5148289-8 (Version None)
Quarter: 2006Q4

REPORT INFORMATION
  Report Type: 
  Country: None (occurrence: None)
  Receive Date: 20061106
  Receipt Date: 20061025
  Transmission Date: 20070319
  Serious: Yes (Hospitalization)
  Sender: FDA-Public Use
  Company Number: 228288

PATIENT
  Age: 46 Year
  Sex: Male

DRUGS (2)
  1. RAPTIVA [Suspect]
     Indication: PSORIASIS
     Dosage: 0.142 ML, 1/WEEK, ORAL
     Route: 048
     Dates: start: 20051215, end: 20060419
  2. SORIATANE [Suspect]
     Indication: PSORIASIS
     Dosage: 20 MG, QD, ORAL
     Route: 048
     Dates: start: 20051215, end: 20060505

REACTIONS (9)
  - ANTINUCLEAR ANTIBODY POSITIVE [None]
  - DNA ANTIBODY POSITIVE [None]
  - HYPOTHYROIDISM [None]
  - MUSCLE DISORDER [None]
  - MYOSITIS [None]
  - PSORIASIS [None]
  - PUSTULAR PSORIASIS [None]
  - RHABDOMYOLYSIS [None]
  - SPEECH DISORDER [None]
